FAERS Safety Report 4767467-0 (Version None)
Quarter: 2005Q3

REPORT INFORMATION
  Report Type: 
  Country: None (occurrence: None)
  Receive Date: 20050912
  Receipt Date: 20050825
  Transmission Date: 20060218
  Serious: Yes (Death)
  Sender: FDA-Public Use
  Company Number: 2005S1008256

PATIENT
  Age: 40 Year
  Sex: Female

DRUGS (2)
  1. CLOZAPINE [Suspect]
     Dosage: 25 MG; HS; PO
     Route: 048
     Dates: start: 20030101, end: 20050801
  2. CLOZAPINE [Suspect]
     Dosage: 400  MG; HS; PO
     Route: 048
     Dates: start: 20030101, end: 20050801

REACTIONS (1)
  - DEATH [None]
